FAERS Safety Report 11812787 (Version 2)
Quarter: 2016Q1

REPORT INFORMATION
  Report Type: Spontaneous
  Country: NL (occurrence: NL)
  Receive Date: 20151209
  Receipt Date: 20160121
  Transmission Date: 20160525
  Serious: Yes (Death, Hospitalization, Other)
  Sender: FDA-Public Use
  Company Number: NL-AMGEN-NLDSP2015129696

PATIENT
  Age: 61 Year
  Sex: Male
  Weight: 54 kg

DRUGS (2)
  1. MIMPARA [Suspect]
     Active Substance: CINACALCET HYDROCHLORIDE
     Indication: PRODUCT USED FOR UNKNOWN INDICATION
     Dosage: UNK, QD
     Route: 065
  2. OMEPRAZOL                          /00661201/ [Concomitant]
     Active Substance: OMEPRAZOLE
     Dosage: UNK UNK, QD

REACTIONS (11)
  - Pleural effusion [Fatal]
  - Decreased appetite [Fatal]
  - Blood calcium abnormal [Unknown]
  - Hyperparathyroidism [Unknown]
  - Muscular weakness [Fatal]
  - Decreased interest [Unknown]
  - General physical health deterioration [Unknown]
  - Hospitalisation [Unknown]
  - Gait disturbance [Unknown]
  - Asthenia [Unknown]
  - Underweight [Fatal]

NARRATIVE: CASE EVENT DATE: 20131101
